FAERS Safety Report 5848995-3 (Version None)
Quarter: 2008Q3

REPORT INFORMATION
  Report Type: 
  Country: None (occurrence: None)
  Receive Date: 20080814
  Receipt Date: 20080814
  Transmission Date: 20090109
  Serious: No
  Sender: FDA-Public Use
  Company Number: FVF3801S

PATIENT
  Age: 80 Year
  Sex: Female

DRUGS (1)
  1. RANIBIZUMAB 10MG/ML, 0.3 ML/VIAL [Suspect]
     Indication: MACULAR DEGENERATION
     Dosage: INTRAVITREAL INJECTION
     Dates: start: 20080717

REACTIONS (1)
  - RETINAL PIGMENT EPITHELIAL TEAR [None]
